FAERS Safety Report 22655189 (Version 1)
Quarter: 2023Q2

REPORT INFORMATION
  Report Type: Spontaneous
  Country: US (occurrence: None)
  Receive Date: 20230628
  Receipt Date: 20230628
  Transmission Date: 20230721
  Serious: No
  Sender: FDA-Public Use
  Company Number: None

PATIENT
  Age: 32 Year
  Sex: Female

DRUGS (2)
  1. MYALEPT [Suspect]
     Active Substance: METRELEPTIN
     Indication: Lipodystrophy acquired
     Dosage: FREQUENCY : TWICE A DAY;?
     Route: 058
  2. BACTERIOSTATIC WATER [Concomitant]
     Active Substance: WATER
     Dates: start: 20161019

REACTIONS (1)
  - Hypertrophic cardiomyopathy [None]

NARRATIVE: CASE EVENT DATE: 20230628
